FAERS Safety Report 6658180-3 (Version None)
Quarter: 2010Q1

REPORT INFORMATION
  Report Type: 
  Country: None (occurrence: None)
  Receive Date: 20100330
  Receipt Date: 20100323
  Transmission Date: 20100710
  Serious: Yes (Other)
  Sender: FDA-Public Use
  Company Number: B0643150A

PATIENT
  Sex: Female

DRUGS (2)
  1. TYKERB [Suspect]
     Indication: BREAST CANCER
     Dosage: 1250MG PER DAY
     Route: 048
     Dates: start: 20091125
  2. XELODA [Suspect]
     Indication: BREAST CANCER
     Dosage: 2000MGM2 PER DAY
     Route: 048
     Dates: start: 20091125

REACTIONS (1)
  - JAUNDICE [None]
